FAERS Safety Report 8118942-2 (Version None)
Quarter: 2012Q1

REPORT INFORMATION
  Report Type: 
  Country: None (occurrence: None)
  Receive Date: 20120207
  Receipt Date: 20120131
  Transmission Date: 20120608
  Serious: Yes (Hospitalization)
  Sender: FDA-Public Use
  Company Number: US-B.I. PHARMACEUTICALS,INC./RIDGEFIELD-2011-BP-28562BP

PATIENT
  Sex: Male

DRUGS (17)
  1. OTC-STOOL SOFTENER [Concomitant]
     Route: 048
  2. LISINOPRIL [Concomitant]
     Indication: HYPERTENSION
     Dosage: 40 MG
     Route: 048
  3. TRIM/HCTZ [Concomitant]
     Indication: DIURETIC THERAPY
     Route: 048
  4. SIMVASTATIN [Concomitant]
     Indication: BLOOD CHOLESTEROL ABNORMAL
     Dosage: 80 MG
     Route: 048
  5. HYDROCODONE BITARTRATE AND ACETAMINOPHEN [Concomitant]
     Indication: PAIN
     Route: 048
  6. PLAVIX [Concomitant]
     Indication: TRANSIENT ISCHAEMIC ATTACK
     Dosage: 75 MG
     Route: 048
  7. VALIUM [Concomitant]
     Dosage: 10 MG
     Route: 048
  8. GABAPENTIN [Concomitant]
     Indication: PAIN
     Dosage: 800 MG
     Route: 048
  9. TRADJENTA [Suspect]
     Indication: TYPE 2 DIABETES MELLITUS
     Dosage: 5 MG
     Route: 048
     Dates: start: 20110905, end: 20111217
  10. MIRTAZAPINE [Concomitant]
     Dosage: 45 MG
     Route: 048
  11. LUMIGAN [Concomitant]
     Indication: GLAUCOMA
  12. ABILIFY [Concomitant]
     Indication: MOOD ALTERED
     Dosage: 5 MG
     Route: 048
  13. ATENOLOL [Concomitant]
     Indication: HYPERTENSION
     Dosage: 100 MG
     Route: 048
  14. PROZAC [Concomitant]
     Dosage: 50 MG
     Route: 048
  15. NORVASC [Concomitant]
     Indication: HYPERTENSION
     Route: 048
  16. OXYBUTYNIN [Concomitant]
     Indication: HYPERTONIC BLADDER
     Dosage: 10 MG
     Route: 048
  17. CYMBALTA [Concomitant]
     Indication: FIBROMYALGIA
     Dosage: 160 MG
     Route: 048

REACTIONS (2)
  - BLOOD GLUCOSE INCREASED [None]
  - PANCREATITIS [None]
